FAERS Safety Report 17789981 (Version 1)
Quarter: 2020Q2

REPORT INFORMATION
  Report Type: Spontaneous
  Country: IT (occurrence: IT)
  Receive Date: 20200515
  Receipt Date: 20200515
  Transmission Date: 20200714
  Serious: Yes (Hospitalization)
  Sender: FDA-Public Use
  Company Number: IT-TEVA-2020-IT-1235097

PATIENT
  Age: 59 Year
  Sex: Male

DRUGS (5)
  1. AMOXICILLINA/ACIDO CLAVULANICO [Suspect]
     Active Substance: AMOXICILLIN\CLAVULANIC ACID
     Indication: PROPHYLAXIS
     Dosage: 3 DOSAGE FORMS
  2. PRAMIPEXOLE. [Concomitant]
     Active Substance: PRAMIPEXOLE
     Dosage: 0.52 MG
     Route: 048
  3. EUTIROX 50 MICROGRAMMI COMPRESSE [Concomitant]
     Active Substance: LEVOTHYROXINE SODIUM
     Dosage: 50 MICROGRAM
  4. SULFUR HEXAFLUORIDE [Suspect]
     Active Substance: SULFUR HEXAFLUORIDE
     Indication: INVESTIGATION
     Dosage: 1.2 ML
     Route: 042
     Dates: start: 20200416, end: 20200416
  5. RIVOTRIL [Concomitant]
     Active Substance: CLONAZEPAM
     Dosage: 7 GTT

REACTIONS (4)
  - Pain [Recovered/Resolved]
  - Hypotension [Recovered/Resolved]
  - Electrocardiogram abnormal [Recovered/Resolved]
  - Erythema [Recovered/Resolved]

NARRATIVE: CASE EVENT DATE: 20200416
